FAERS Safety Report 15361827 (Version 1)
Quarter: 2018Q3

REPORT INFORMATION
  Report Type: Spontaneous
  Country: US (occurrence: US)
  Receive Date: 20180831
  Receipt Date: 20180831
  Transmission Date: 20181010
  Serious: Yes (Other)
  Sender: FDA-Public Use
  Company Number: None

PATIENT
  Age: 77 Year
  Sex: Female
  Weight: 68.49 kg

DRUGS (1)
  1. FLUTICASONE PROPIONATE NASAL SPRAY 50MCG PER SPRAY [Suspect]
     Active Substance: FLUTICASONE PROPIONATE
     Indication: SINUSITIS
     Route: 045
     Dates: start: 20171202, end: 201805

REACTIONS (3)
  - Oropharyngeal pain [None]
  - Secretion discharge [None]
  - Mouth ulceration [None]
